FAERS Safety Report 5370679-9 (Version None)
Quarter: 2007Q2

REPORT INFORMATION
  Report Type: 
  Country: None (occurrence: None)
  Receive Date: 20070626
  Receipt Date: 20070621
  Transmission Date: 20071010
  Serious: Yes (Death, Hospitalization)
  Sender: FDA-Public Use
  Company Number: FR-SANOFI-SYNTHELABO-F01200700571

PATIENT
  Sex: Male
  Weight: 64 kg

DRUGS (4)
  1. FLUOROURACIL [Suspect]
     Dosage: 660 MG BOLUS FOLLOWED BY 2000 MG INFUSION
     Route: 042
     Dates: start: 20060817, end: 20060818
  2. FOLINIC ACID [Suspect]
     Route: 042
     Dates: start: 20060817, end: 20060817
  3. IRINOTECAN HCL [Suspect]
     Route: 042
     Dates: start: 20060817, end: 20060817
  4. OXALIPLATIN [Suspect]
     Indication: PANCREATIC CARCINOMA METASTATIC
     Route: 042
     Dates: start: 20060817, end: 20060817

REACTIONS (1)
  - NEUTROPENIC SEPSIS [None]
